FAERS Safety Report 25382957 (Version 1)
Quarter: 2025Q2

REPORT INFORMATION
  Report Type: Spontaneous
  Country: US (occurrence: US)
  Receive Date: 20250602
  Receipt Date: 20250602
  Transmission Date: 20250716
  Serious: No
  Sender: SANOFI AVENTIS
  Company Number: US-SA-2025SA152837

PATIENT
  Age: 39 Year
  Sex: Male

DRUGS (1)
  1. DUPIXENT [Suspect]
     Active Substance: DUPILUMAB
     Indication: Eosinophilic oesophagitis
     Dosage: 300 MG, QW
     Route: 058
     Dates: start: 20250422

REACTIONS (7)
  - Dehydration [Unknown]
  - Anxiety [Unknown]
  - Panic attack [Unknown]
  - Dyspnoea [Unknown]
  - Blood blister [Unknown]
  - Pruritus [Unknown]
  - Injection site reaction [Unknown]
